FAERS Safety Report 16895643 (Version 1)
Quarter: 2019Q4

REPORT INFORMATION
  Report Type: Spontaneous
  Country: US (occurrence: US)
  Receive Date: 20191008
  Receipt Date: 20191008
  Transmission Date: 20200122
  Serious: Yes (Other)
  Sender: FDA-Public Use
  Company Number: US-BAYER-2019-177630

PATIENT
  Age: 60 Year
  Sex: Male
  Weight: 83.9 kg

DRUGS (12)
  1. ASPIRIN (PAIN AND FEVER) [Suspect]
     Active Substance: ASPIRIN
  2. METHOTREXATE SODIUM. [Suspect]
     Active Substance: METHOTREXATE SODIUM
  3. ROSUVASTATIN. [Concomitant]
     Active Substance: ROSUVASTATIN
  4. CLOPIDOGREL [Concomitant]
     Active Substance: CLOPIDOGREL BISULFATE
  5. ATENOLOL. [Concomitant]
     Active Substance: ATENOLOL
  6. SULFASALAZINE. [Concomitant]
     Active Substance: SULFASALAZINE
  7. ALEVE [Suspect]
     Active Substance: NAPROXEN SODIUM
     Dosage: UNK
     Dates: start: 2006
  8. ENBREL [Suspect]
     Active Substance: ETANERCEPT
     Indication: ARTHRITIS
  9. INDOCIN [Concomitant]
     Active Substance: INDOMETHACIN
     Dosage: UNK
     Dates: start: 2006
  10. CYCLOBENZAPRINE. [Concomitant]
     Active Substance: CYCLOBENZAPRINE
  11. LOSARTAN. [Concomitant]
     Active Substance: LOSARTAN
  12. SILDENAFIL CITRATE. [Concomitant]
     Active Substance: SILDENAFIL CITRATE

REACTIONS (18)
  - Post-traumatic headache [Recovered/Resolved]
  - Labelled drug-drug interaction medication error [None]
  - Barrett^s oesophagus [None]
  - Musculoskeletal stiffness [Not Recovered/Not Resolved]
  - Body height decreased [Recovered/Resolved]
  - Depression [Recovered/Resolved]
  - Myalgia [Not Recovered/Not Resolved]
  - Cough [Unknown]
  - Abdominal discomfort [Unknown]
  - Renal failure [Recovered/Resolved]
  - Cervical vertebral fracture [Recovered/Resolved]
  - Malaise [Recovered/Resolved]
  - Post-traumatic stress disorder [Recovered/Resolved]
  - Throat irritation [Unknown]
  - Feeding disorder [None]
  - Spondylitis [Not Recovered/Not Resolved]
  - Panic attack [Recovered/Resolved]
  - Blood pressure decreased [Recovered/Resolved]
